FAERS Safety Report 21204040 (Version 1)
Quarter: 2022Q3

REPORT INFORMATION
  Report Type: Spontaneous
  Country: AU (occurrence: AU)
  Receive Date: 20220811
  Receipt Date: 20220811
  Transmission Date: 20221026
  Serious: Yes (Other)
  Sender: FDA-Public Use
  Company Number: AU-drreddys-SPO/AUS/22/0153231

PATIENT
  Age: 55 Year
  Sex: Female

DRUGS (5)
  1. CAPECITABINE [Suspect]
     Active Substance: CAPECITABINE
     Indication: Product used for unknown indication
  2. DENOSUMAB [Suspect]
     Active Substance: DENOSUMAB
     Indication: Product used for unknown indication
  3. ANASTROZOLE [Suspect]
     Active Substance: ANASTROZOLE
     Indication: Product used for unknown indication
  4. LETROZOLE [Suspect]
     Active Substance: LETROZOLE
     Indication: Product used for unknown indication
  5. RIBOCICLIB [Suspect]
     Active Substance: RIBOCICLIB
     Indication: Product used for unknown indication

REACTIONS (13)
  - Malignant neoplasm progression [Unknown]
  - Breast cancer metastatic [Unknown]
  - Neutropenia [Unknown]
  - Ascites [Unknown]
  - Abdominal distension [Unknown]
  - Osteoarthritis [Unknown]
  - Mobility decreased [Unknown]
  - Radicular pain [Unknown]
  - Arthralgia [Unknown]
  - Fatigue [Unknown]
  - Gastrointestinal disorder [Unknown]
  - Nausea [Unknown]
  - Rash [Unknown]
